FAERS Safety Report 7339389-2 (Version None)
Quarter: 2011Q1

REPORT INFORMATION
  Report Type: 
  Country: None (occurrence: None)
  Receive Date: 20110308
  Receipt Date: 20110228
  Transmission Date: 20110831
  Serious: Yes (Hospitalization)
  Sender: FDA-Public Use
  Company Number: JP-AMGEN-JPNCT2011005066

PATIENT
  Age: 83 Year
  Sex: Female
  Weight: 13.605 kg

DRUGS (9)
  1. PANITUMUMAB [Suspect]
     Dosage: 4.8 MG/KG, Q2WK
     Route: 042
     Dates: start: 20110126
  2. TOKUHON [Suspect]
     Dosage: UNK
     Route: 062
  3. FERROUS CITRATE [Concomitant]
     Dosage: UNK
     Route: 048
  4. PANTOSIN [Concomitant]
     Dosage: UNK
     Route: 048
  5. MAGNESIUM OXIDE [Concomitant]
     Dosage: UNK
     Route: 048
  6. HIRUDOID SOFT OINTMENT [Concomitant]
     Dosage: UNK
     Route: 062
  7. MINOMYCIN [Concomitant]
     Dosage: UNK
     Route: 048
  8. AMLODIPINE [Concomitant]
     Dosage: UNK
     Route: 048
  9. PANITUMUMAB [Suspect]
     Indication: COLORECTAL CANCER
     Dosage: 6 MG/KG, Q2WK
     Route: 042
     Dates: start: 20101018, end: 20101129

REACTIONS (2)
  - SKIN EROSION [None]
  - FEMORAL NECK FRACTURE [None]
